FAERS Safety Report 25051472 (Version 1)
Quarter: 2025Q1

REPORT INFORMATION
  Report Type: Spontaneous
  Country: US (occurrence: None)
  Receive Date: 20250307
  Receipt Date: 20250307
  Transmission Date: 20250408
  Serious: Yes (Death)
  Sender: FDA-CTU
  Company Number: None

PATIENT
  Age: 61 Year
  Sex: Female

DRUGS (1)
  1. XCOPRI [Suspect]
     Active Substance: CENOBAMATE
     Dosage: 200 MG DAILY ORAL ?
     Route: 048
     Dates: start: 20240322

REACTIONS (1)
  - Seizure [None]

NARRATIVE: CASE EVENT DATE: 20250306
